FAERS Safety Report 7699442-0 (Version None)
Quarter: 2011Q3

REPORT INFORMATION
  Report Type: 
  Country: None (occurrence: None)
  Receive Date: 20110820
  Receipt Date: 20101026
  Transmission Date: 20111222
  Serious: No
  Sender: FDA-Public Use
  Company Number: US-ALLERGAN-1013811US

PATIENT
  Age: 64 Year
  Sex: Male

DRUGS (4)
  1. SANCTURA XR [Suspect]
     Indication: PROSTATOMEGALY
     Dosage: 60 MG, QD
     Route: 048
     Dates: start: 20100401
  2. ANXIETY MEDICATION [Concomitant]
     Indication: ANXIETY
     Dosage: UNK
  3. RAPIFLO [Concomitant]
     Indication: BENIGN PROSTATIC HYPERPLASIA
     Dosage: 8 MG, QD
     Route: 048
     Dates: start: 20101021
  4. DEPRESSION MEDICATION [Concomitant]
     Indication: DEPRESSION

REACTIONS (2)
  - PROSTATIC PAIN [None]
  - NOCTURIA [None]
